FAERS Safety Report 9695224 (Version 1)
Quarter: 2013Q4

REPORT INFORMATION
  Report Type: Spontaneous
  Country: US (occurrence: US)
  Receive Date: 20131119
  Receipt Date: 20131119
  Transmission Date: 20140711
  Serious: Yes (Hospitalization)
  Sender: FDA-Public Use
  Company Number: US-BAYER-2013-139508

PATIENT
  Age: 43 Year
  Sex: Female
  Weight: 79 kg

DRUGS (19)
  1. YAZ [Suspect]
     Indication: ACNE
     Dosage: UNK
     Dates: end: 20090818
  2. METROGEL [Concomitant]
     Route: 061
  3. FLUCONAZOLE [Concomitant]
     Dosage: 200 MG, UNK
  4. PLEXION [Concomitant]
  5. PHENTERMINE [Concomitant]
     Dosage: 30 MG, UNK
  6. PROPOXYPHENE [Concomitant]
  7. TORADOL [Concomitant]
     Dosage: UNK
  8. NORCO [Concomitant]
     Dosage: 10 MG, UNK
  9. HYDROCODONE W/ACETAMINOPHEN [Concomitant]
  10. IBUPROFEN [Concomitant]
     Dosage: 800 MG, UNK
  11. MORPHINE [Concomitant]
  12. VICODIN [Concomitant]
  13. CENTRUM [Concomitant]
  14. INDOCIN [Concomitant]
     Dosage: 50 MG, UNK
  15. EXCEDRIN [ACETYLSALICYLIC ACID,CAFFEINE,PARACETAMOL,SALICYLAMIDE] [Concomitant]
  16. PROZAC [Concomitant]
     Indication: DEPRESSION
  17. MIRTAZAPINE [Concomitant]
  18. ULTRAM [Concomitant]
     Indication: LIGAMENT SPRAIN
  19. ULTRAM [Concomitant]
     Indication: ARTHRITIS

REACTIONS (2)
  - Thrombophlebitis superficial [None]
  - Deep vein thrombosis [None]
